FAERS Safety Report 12302205 (Version 1)
Quarter: 2016Q2

REPORT INFORMATION
  Report Type: Spontaneous
  Country: DE (occurrence: DE)
  Receive Date: 20160425
  Receipt Date: 20160425
  Transmission Date: 20160815
  Serious: Yes (Other)
  Sender: FDA-Public Use
  Company Number: GXKR2016DE002021

PATIENT

DRUGS (8)
  1. METFORMIN [Concomitant]
     Active Substance: METFORMIN HYDROCHLORIDE
     Indication: POLYCYSTIC OVARIES
     Dosage: 1000 [MG/D ]/ DOSAGE DECREASED TO 500MG/D (GW 0-12)
     Route: 064
  2. FOLSAEURE [Concomitant]
     Active Substance: FOLIC ACID
     Indication: PROPHYLAXIS OF NEURAL TUBE DEFECT
     Dosage: 0.8 [MG/D ]
     Route: 064
     Dates: start: 20150210, end: 20151013
  3. ERYTHROMYCIN. [Concomitant]
     Active Substance: ERYTHROMYCIN
     Indication: CHLAMYDIAL INFECTION
     Dosage: UNK (GW 9-11)
     Route: 064
  4. CABERGOLINE. [Concomitant]
     Active Substance: CABERGOLINE
     Indication: PROLACTINOMA
     Dosage: 1.5 [MG/WK ] (GW 0-6.2)
     Route: 064
  5. FRAGMIN [Concomitant]
     Active Substance: DALTEPARIN SODIUM
     Indication: FACTOR V LEIDEN MUTATION
     Dosage: 7500 [IE/D ]
     Route: 064
     Dates: start: 20150314, end: 20151013
  6. SERTRALINE [Suspect]
     Active Substance: SERTRALINE HYDROCHLORIDE
     Indication: DEPRESSION
     Dosage: 50 [MG/D ]
     Route: 064
     Dates: start: 20150210, end: 20151013
  7. L-THYROXIN [Concomitant]
     Active Substance: LEVOTHYROXINE SODIUM
     Indication: HYPOTHYROIDISM
     Dosage: 175 [?G/D ]/ SUBSTITUTION AFTER SUBTOTAL REMOVAL OF THE THYROID GLAND. INCREASING DOSAGE
     Route: 064
     Dates: start: 20150210, end: 20151013
  8. ASPIRIN. [Concomitant]
     Active Substance: ASPIRIN
     Indication: FACTOR V LEIDEN MUTATION
     Dosage: 100 [MG/D ]
     Route: 064
     Dates: start: 20150318, end: 20151013

REACTIONS (5)
  - Restlessness [Recovered/Resolved]
  - Small for dates baby [Not Recovered/Not Resolved]
  - Temperature regulation disorder [Recovered/Resolved]
  - Selective eating disorder [Recovered/Resolved]
  - Infantile haemangioma [Not Recovered/Not Resolved]

NARRATIVE: CASE EVENT DATE: 20151013
